FAERS Safety Report 19847195 (Version 1)
Quarter: 2021Q3

REPORT INFORMATION
  Report Type: Report from Study
  Country: None (occurrence: US)
  Receive Date: 20210917
  Receipt Date: 20210917
  Transmission Date: 20211014
  Serious: Yes (Other)
  Sender: FDA-Public Use
  Company Number: US-ABBVIE-21K-163-4079822-00

PATIENT
  Age: 59 Year
  Sex: Male

DRUGS (2)
  1. DUOPA [Suspect]
     Active Substance: CARBIDOPA\LEVODOPA
  2. DUOPA [Suspect]
     Active Substance: CARBIDOPA\LEVODOPA
     Indication: PRODUCT USED FOR UNKNOWN INDICATION
     Route: 050
     Dates: start: 20210908

REACTIONS (7)
  - Malaise [Unknown]
  - On and off phenomenon [Unknown]
  - Therapeutic product effect incomplete [Unknown]
  - Device dislocation [Unknown]
  - Stoma site discharge [Unknown]
  - Catatonia [Unknown]
  - Abnormal dreams [Unknown]

NARRATIVE: CASE EVENT DATE: 202109
